FAERS Safety Report 6610621-3 (Version None)
Quarter: 2010Q1

REPORT INFORMATION
  Report Type: 
  Country: None (occurrence: None)
  Receive Date: 20100302
  Receipt Date: 20100220
  Transmission Date: 20100710
  Serious: Yes (Other)
  Sender: FDA-Public Use
  Company Number: US-ABBOTT-10P-163-0627769-00

PATIENT
  Sex: Male

DRUGS (2)
  1. NIASPAN [Suspect]
     Indication: DRUG USE FOR UNKNOWN INDICATION
     Dosage: 1 TABLET INCREASED TO 2 TABLETS
     Dates: start: 20050101
  2. NIASPAN [Suspect]

REACTIONS (3)
  - FLUSHING [None]
  - RASH [None]
  - STENT PLACEMENT [None]
